FAERS Safety Report 24725151 (Version 2)
Quarter: 2025Q1

REPORT INFORMATION
  Report Type: Spontaneous
  Country: KR (occurrence: KR)
  Receive Date: 20241212
  Receipt Date: 20250221
  Transmission Date: 20250409
  Serious: Yes (Other)
  Sender: UNKNOWN
  Company Number: KR-CORZA MEDICAL GMBH-2024-KR-002272

PATIENT

DRUGS (1)
  1. TACHOSIL [Suspect]
     Active Substance: FIBRINOGEN HUMAN\HUMAN THROMBIN
     Indication: Peyronie^s disease
     Route: 065

REACTIONS (2)
  - Haematoma [Unknown]
  - Off label use [Unknown]
